FAERS Safety Report 6645006-7 (Version None)
Quarter: 2010Q1

REPORT INFORMATION
  Report Type: 
  Country: None (occurrence: None)
  Receive Date: 20100319
  Receipt Date: 20100319
  Transmission Date: 20100710
  Serious: Yes (Life-Threatening, Hospitalization, Other)
  Sender: FDA-Public Use
  Company Number: None

PATIENT
  Age: 29 Year
  Sex: Female
  Weight: 77.1115 kg

DRUGS (2)
  1. ORTHO TRI-CYCLEN [Suspect]
     Indication: ORAL CONTRACEPTION
     Dosage: 1 TABLET DAILY PO
     Route: 048
     Dates: start: 20080703, end: 20100208
  2. CLARINEX [Concomitant]

REACTIONS (2)
  - DEEP VEIN THROMBOSIS [None]
  - PULMONARY EMBOLISM [None]
